FAERS Safety Report 11264145 (Version 1)
Quarter: 2015Q3

REPORT INFORMATION
  Report Type: Spontaneous
  Country: US (occurrence: None)
  Receive Date: 20150710
  Receipt Date: 20150710
  Transmission Date: 20151125
  Serious: No
  Sender: FDA-Public Use
  Company Number: None

PATIENT
  Age: 4 Year
  Sex: Female

DRUGS (1)
  1. GENOTROPIN [Suspect]
     Active Substance: SOMATROPIN
     Indication: DWARFISM
     Dosage: 1 MG DAILY X 6 DAYS/WK
     Route: 058
     Dates: start: 20150630, end: 20150708

REACTIONS (2)
  - Drug administered in wrong device [None]
  - Incorrect dose administered [None]

NARRATIVE: CASE EVENT DATE: 20150708
